FAERS Safety Report 8459881-7 (Version None)
Quarter: 2012Q2

REPORT INFORMATION
  Report Type: 
  Country: None (occurrence: None)
  Receive Date: 20120622
  Receipt Date: 20120618
  Transmission Date: 20120825
  Serious: Yes (Life-Threatening, Hospitalization)
  Sender: FDA-Public Use
  Company Number: PHEH2012US010644

PATIENT
  Sex: Female
  Weight: 65.32 kg

DRUGS (9)
  1. CITALOPRAM HYDROBROMIDE [Concomitant]
     Indication: DEPRESSION
     Dosage: 20 MG, QD
     Route: 048
  2. LORTAB [Concomitant]
     Indication: PAIN
     Dosage: 7.5 UKN, Q8H
  3. KLONOPIN [Concomitant]
     Indication: MENTAL DISORDER
     Dosage: 1 MG, BID
     Route: 048
  4. KLONOPIN [Concomitant]
     Dosage: 2 MG, QHS
     Route: 048
  5. LYRICA [Concomitant]
     Indication: PAIN
     Dosage: 50 MG, BID
     Route: 048
  6. LORTAB [Concomitant]
     Dosage: 500 UKN, PRN
     Route: 048
  7. NEURONTIN [Concomitant]
     Indication: PAIN
     Dosage: 300 MG, TID
     Route: 048
  8. PRILOSEC [Concomitant]
     Indication: GASTROOESOPHAGEAL REFLUX DISEASE
     Dosage: 20 MG, QD
     Route: 048
  9. CLOZARIL [Suspect]
     Indication: DEPRESSION
     Route: 048

REACTIONS (4)
  - CONFUSIONAL STATE [None]
  - CONVULSION [None]
  - OVERDOSE [None]
  - RESPIRATORY DISTRESS [None]
